FAERS Safety Report 19988114 (Version 2)
Quarter: 2022Q3

REPORT INFORMATION
  Report Type: Spontaneous
  Country: MY (occurrence: MY)
  Receive Date: 20211022
  Receipt Date: 20220810
  Transmission Date: 20221026
  Serious: Yes (Death, Hospitalization, Other)
  Sender: FDA-Public Use
  Company Number: MY-LUPIN PHARMACEUTICALS INC.-2021-20239

PATIENT
  Age: 18 Year
  Sex: Male

DRUGS (9)
  1. METHYLPREDNISOLONE [Suspect]
     Active Substance: METHYLPREDNISOLONE
     Indication: Mycobacterial infection
     Dosage: UNK
     Route: 042
  2. CIPROFLOXACIN [Suspect]
     Active Substance: CIPROFLOXACIN
     Indication: Mycobacterial infection
     Dosage: 400 MILLIGRAM, BID
     Route: 042
  3. AMIKACIN [Suspect]
     Active Substance: AMIKACIN
     Indication: Mycobacterial infection
     Dosage: 800 MILLIGRAM, QD
     Route: 042
  4. NEUPOGEN [Suspect]
     Active Substance: FILGRASTIM
     Indication: Mycobacterial infection
     Dosage: UNK
     Route: 058
  5. IMIPENEM [Suspect]
     Active Substance: IMIPENEM
     Indication: Mycobacterial infection
     Dosage: 1 GRAM, QID
     Route: 042
  6. ETOPOSIDE [Concomitant]
     Active Substance: ETOPOSIDE
     Indication: Acute lymphocytic leukaemia
     Dosage: UNK (CONSOLIDATION PHASE OF CHEMOTHERAPY, ON WEEK 66, WITH MODIFIED GERMAN ALL PROTOCOL)
     Route: 065
  7. METHOTREXATE [Concomitant]
     Active Substance: METHOTREXATE
     Indication: Acute lymphocytic leukaemia
     Dosage: UNK (CONSOLIDATION PHASE OF CHEMOTHERAPY, ON WEEK 66, WITH MODIFIED GERMAN ALL PROTOCOL)
     Route: 065
  8. CYTARABINE [Concomitant]
     Active Substance: CYTARABINE
     Indication: Acute lymphocytic leukaemia
     Dosage: UNK CONSOLIDATION PHASE OF CHEMOTHERAPY, ON WEEK 66, WITH MODIFIED GERMAN ALL PROTOCOL
     Route: 065
  9. CEFEPIME [Concomitant]
     Active Substance: CEFEPIME HYDROCHLORIDE
     Indication: Evidence based treatment
     Dosage: 1 GRAM, BID
     Route: 042

REACTIONS (3)
  - Drug ineffective [Fatal]
  - Liver injury [Not Recovered/Not Resolved]
  - Drug resistance [Unknown]
